FAERS Safety Report 19469109 (Version 3)
Quarter: 2021Q3

REPORT INFORMATION
  Report Type: Report from Study
  Country: FR (occurrence: FR)
  Receive Date: 20210628
  Receipt Date: 20210923
  Transmission Date: 20211014
  Serious: Yes (Other)
  Sender: FDA-Public Use
  Company Number: FR-BRISTOL-MYERS SQUIBB COMPANY-BMS-2021-061038

PATIENT
  Age: 69 Year
  Sex: Female
  Weight: 63 kg

DRUGS (12)
  1. IPILIMUMAB [Suspect]
     Active Substance: IPILIMUMAB
     Indication: COLORECTAL CANCER
     Dosage: 59 MILLIGRAM
     Route: 042
     Dates: start: 20210503
  2. IRINOTECAN HYDROCHLORIDE. [Suspect]
     Active Substance: IRINOTECAN HYDROCHLORIDE
     Indication: COLORECTAL CANCER
     Dosage: 308 MILLIGRAM
     Route: 042
     Dates: start: 20201110
  3. NIVOLUMAB [Suspect]
     Active Substance: NIVOLUMAB
     Indication: COLORECTAL CANCER
     Dosage: 240 MILLIGRAM
     Route: 042
     Dates: start: 20210503
  4. FLUOROURACIL. [Suspect]
     Active Substance: FLUOROURACIL
     Indication: COLORECTAL CANCER
     Dosage: 684 MILLIGRAM
     Route: 040
     Dates: start: 20201110
  5. FOLINIC ACID [Suspect]
     Active Substance: LEUCOVORIN
     Indication: COLORECTAL CANCER
     Dosage: 684 MILLIGRAM
     Route: 042
     Dates: start: 20201110
  6. FLUOROURACIL. [Suspect]
     Active Substance: FLUOROURACIL
     Dosage: 505 MILLIGRAM
     Route: 040
     Dates: start: 20210329
  7. FLUOROURACIL. [Suspect]
     Active Substance: FLUOROURACIL
     Dosage: 3400 MILLIGRAM
     Route: 042
     Dates: start: 20210329
  8. BEVACIZUMAB. [Suspect]
     Active Substance: BEVACIZUMAB
     Dosage: 305 MILLIGRAM
     Route: 042
     Dates: start: 20210329
  9. FLUOROURACIL. [Suspect]
     Active Substance: FLUOROURACIL
     Dosage: 4104 MILLIGRAM
     Route: 042
     Dates: start: 20201110
  10. IRINOTECAN HYDROCHLORIDE. [Suspect]
     Active Substance: IRINOTECAN HYDROCHLORIDE
     Dosage: 252 MILLIGRAM
     Route: 042
     Dates: start: 20210329
  11. FOLINIC ACID [Suspect]
     Active Substance: LEUCOVORIN
     Dosage: 250 MILLIGRAM
     Route: 042
     Dates: start: 20210329
  12. BEVACIZUMAB. [Suspect]
     Active Substance: BEVACIZUMAB
     Indication: COLORECTAL CANCER
     Dosage: 315 MILLIGRAM
     Route: 042
     Dates: start: 20201110

REACTIONS (1)
  - Diplopia [Not Recovered/Not Resolved]

NARRATIVE: CASE EVENT DATE: 20210531
